FAERS Safety Report 17351101 (Version 1)
Quarter: 2020Q1

REPORT INFORMATION
  Report Type: Spontaneous
  Country: JP (occurrence: JP)
  Receive Date: 20200130
  Receipt Date: 20200130
  Transmission Date: 20200409
  Serious: Yes (Death, Other)
  Sender: FDA-Public Use
  Company Number: JP-GUERBET-JP-20200009

PATIENT
  Age: 4 Decade
  Sex: Male
  Weight: 70 kg

DRUGS (18)
  1. OPDIVO [Suspect]
     Active Substance: NIVOLUMAB
     Indication: HEAD AND NECK CANCER
     Route: 041
     Dates: start: 20170904, end: 20180424
  2. ROPION [Suspect]
     Active Substance: FLURBIPROFEN AXETIL
     Indication: PRODUCT USED FOR UNKNOWN INDICATION
     Route: 065
     Dates: start: 20180522, end: 20180523
  3. RINDERON (BETAMETHASONE) [Suspect]
     Active Substance: BETAMETHASONE
     Route: 065
     Dates: start: 20180505, end: 20180508
  4. RINDERON (BETAMETHASONE) [Suspect]
     Active Substance: BETAMETHASONE
     Route: 065
     Dates: start: 20180514, end: 20180514
  5. RINDERON (BETAMETHASONE) [Suspect]
     Active Substance: BETAMETHASONE
     Route: 065
     Dates: start: 20180514, end: 20180514
  6. MAGNESCOPE INTRAVENOUS INJECTION 38% SYRINGE 10ML [Suspect]
     Active Substance: GADOTERATE MEGLUMINE
     Indication: ANGIOGRAM
     Route: 065
  7. BAYASPIRIN [Suspect]
     Active Substance: ASPIRIN
     Indication: CEREBRAL INFARCTION
     Route: 065
     Dates: start: 20180502, end: 20180508
  8. BAYASPIRIN [Suspect]
     Active Substance: ASPIRIN
     Route: 065
     Dates: start: 20180509
  9. RINDERON (BETAMETHASONE) [Suspect]
     Active Substance: BETAMETHASONE
     Indication: EPIGLOTTITIS
     Route: 065
     Dates: start: 20180505, end: 20180508
  10. BAYASPIRIN [Suspect]
     Active Substance: ASPIRIN
     Route: 065
     Dates: start: 20180509
  11. TRAMCET [Suspect]
     Active Substance: ACETAMINOPHEN\TRAMADOL
     Indication: ARTHRALGIA
     Route: 048
     Dates: start: 20180325, end: 20180501
  12. RINDERON (BETAMETHASONE) [Suspect]
     Active Substance: BETAMETHASONE
     Route: 065
     Dates: start: 20180505, end: 20180508
  13. RINDERON (BETAMETHASONE) [Suspect]
     Active Substance: BETAMETHASONE
     Indication: EPIGLOTTITIS
     Route: 065
     Dates: start: 20180514, end: 20190514
  14. RINDERON (BETAMETHASONE) [Suspect]
     Active Substance: BETAMETHASONE
     Route: 065
     Dates: start: 20180514, end: 20180514
  15. BAYASPIRIN [Suspect]
     Active Substance: ASPIRIN
     Indication: CEREBRAL INFARCTION
     Route: 065
     Dates: start: 20180509
  16. RINDERON (BETAMETHASONE) [Suspect]
     Active Substance: BETAMETHASONE
     Indication: EPIGLOTTITIS
     Route: 065
     Dates: start: 20180505, end: 20180505
  17. RINDERON (BETAMETHASONE) [Suspect]
     Active Substance: BETAMETHASONE
     Route: 065
     Dates: start: 20180505, end: 20180508
  18. RINDERON (BETAMETHASONE SODIUM PHOSPHATE) [Suspect]
     Active Substance: BETAMETHASONE SODIUM PHOSPHATE
     Indication: OTITIS EXTERNA
     Route: 001
     Dates: start: 20180403, end: 20180419

REACTIONS (9)
  - Pneumonia aspiration [Unknown]
  - Respiratory failure [Unknown]
  - Vocal cord paralysis [Unknown]
  - Epiglottitis [Unknown]
  - Haematochezia [Unknown]
  - Dysphagia [Unknown]
  - Cerebral infarction [Unknown]
  - Epilepsy [Unknown]
  - Death [Fatal]

NARRATIVE: CASE EVENT DATE: 20171003
